FAERS Safety Report 8429349-2 (Version None)
Quarter: 2012Q2

REPORT INFORMATION
  Report Type: 
  Country: None (occurrence: None)
  Receive Date: 20120604
  Receipt Date: 20120503
  Transmission Date: 20120825
  Serious: Yes (Life-Threatening, Hospitalization)
  Sender: FDA-Public Use
  Company Number: P0576

PATIENT
  Age: 65 Year
  Sex: Male

DRUGS (8)
  1. SULFAMETTHOXAZOLE AND TRIMETHOPRIM [Concomitant]
  2. ABIRATERONE/PREDNISONE (PREDNISONE, ABIRATERONE ACETATE) [Concomitant]
  3. KENALOG 9TRIAMCINOLONE ACETONIDE) [Concomitant]
  4. VIXODIN (PARACETAMOL, HYDROCODONE BITARTRATE) [Concomitant]
  5. METAMUCIL (PLANTAGO OVATA) [Concomitant]
  6. PRILOSEC [Concomitant]
  7. PROVENGE [Suspect]
     Indication: PROSTATE CANCER METASTATIC
     Dosage: INTRAVENOUS
     Route: 042
     Dates: start: 20120413, end: 20120413
  8. AMBIEN [Concomitant]

REACTIONS (7)
  - PERICARDIAL EFFUSION [None]
  - ATELECTASIS [None]
  - PULMONARY OEDEMA [None]
  - PULMONARY EMBOLISM [None]
  - PULMONARY HAEMORRHAGE [None]
  - PULMONARY MASS [None]
  - THROMBOSIS IN DEVICE [None]
